FAERS Safety Report 9148422 (Version 1)
Quarter: 2013Q1

REPORT INFORMATION
  Report Type: Spontaneous
  Country: FR (occurrence: None)
  Receive Date: 20130220
  Receipt Date: 20130220
  Transmission Date: 20140127
  Serious: Yes (Death, Hospitalization)
  Sender: FDA-Public Use
  Company Number: DSM-2013-00156

PATIENT
  Age: 68 Year
  Sex: Female

DRUGS (6)
  1. OLMESARTAN MEDOXOMIL/HYDROCHLOROTHIAZIDE [Suspect]
     Indication: HYPERTENSION
     Dosage: 40/12.5 MG (1 IN 1 D), ORAL
     Route: 048
     Dates: end: 20120428
  2. VALDOXAN [Suspect]
     Indication: PRODUCT USED FOR UNKNOWN INDICATION
     Route: 048
     Dates: start: 20120411, end: 20120509
  3. LASILIX [Suspect]
     Indication: PRODUCT USED FOR UNKNOWN INDICATION
     Route: 048
  4. TEMERIT (NEBIVOLOL) (NEBIVOLOL) [Concomitant]
  5. DIFFU K (POTASSIUM CHLORIDE) (POTASSIUM CHLORIDE) [Concomitant]
  6. IXPRIM (PARACETAMOL, TRAMADOL HYDROCHLORIDE) (PARACETAMOL, TRAMADOL HYDROCHLORIDE) [Concomitant]

REACTIONS (5)
  - Hyponatraemia [None]
  - Altered state of consciousness [None]
  - Pneumonia [None]
  - General physical health deterioration [None]
  - Coma scale abnormal [None]
